FAERS Safety Report 18390071 (Version 1)
Quarter: 2020Q4

REPORT INFORMATION
  Report Type: Report from Study
  Country: GB (occurrence: BE)
  Receive Date: 20201016
  Receipt Date: 20201016
  Transmission Date: 20210114
  Serious: Yes (Other)
  Sender: FDA-Public Use
  Company Number: GB-AUROBINDO-AUR-APL-2020-051960

PATIENT
  Age: 13 Year

DRUGS (3)
  1. MELPHALAN. [Suspect]
     Active Substance: MELPHALAN
     Indication: CHEMOTHERAPY
     Dosage: 140 MILLIGRAM/SQ. METER
     Route: 065
  2. ALEMTUZUMAB [Suspect]
     Active Substance: ALEMTUZUMAB
     Indication: CHEMOTHERAPY
     Dosage: 1 MILLIGRAM/KILOGRAM
     Route: 065
  3. FLUDARABINE [Suspect]
     Active Substance: FLUDARABINE PHOSPHATE
     Indication: CHEMOTHERAPY
     Dosage: 150 MILLIGRAM/SQ. METER
     Route: 065

REACTIONS (3)
  - Human herpesvirus 6 infection reactivation [Unknown]
  - Mucoepidermoid carcinoma of salivary gland [Unknown]
  - Graft versus host disease [Unknown]
